FAERS Safety Report 12279111 (Version 1)
Quarter: 2016Q2

REPORT INFORMATION
  Report Type: Spontaneous
  Country: BY (occurrence: BY)
  Receive Date: 20160418
  Receipt Date: 20160418
  Transmission Date: 20160815
  Serious: Yes (Other)
  Sender: FDA-Public Use
  Company Number: BY-GE HEALTHCARE MEDICAL DIAGNOSTICS-VISP-PR-1604L-0213

PATIENT
  Age: 77 Year
  Sex: Female

DRUGS (8)
  1. VISIPAQUE [Suspect]
     Active Substance: IODIXANOL
     Indication: THERAPEUTIC PROCEDURE
  2. INSULIN [Concomitant]
     Active Substance: INSULIN NOS
     Route: 065
  3. 0.9% NACL [Concomitant]
     Active Substance: SODIUM CHLORIDE
     Indication: FLUID REPLACEMENT
     Route: 042
     Dates: start: 20150209
  4. FOSINOPRIL [Concomitant]
     Active Substance: FOSINOPRIL
     Route: 065
  5. ASPIRINE [Concomitant]
     Active Substance: ASPIRIN
     Route: 065
  6. BISOPROLOL [Concomitant]
     Active Substance: BISOPROLOL
     Route: 065
  7. CLOPIDOGREL [Concomitant]
     Active Substance: CLOPIDOGREL BISULFATE
     Route: 065
  8. VISIPAQUE [Suspect]
     Active Substance: IODIXANOL
     Indication: PRODUCT USED FOR UNKNOWN INDICATION
     Dosage: DOSE UNIT UNKNOWN
     Route: 065
     Dates: start: 20150209, end: 20150209

REACTIONS (1)
  - Nephropathy [Unknown]
